FAERS Safety Report 4681172-0 (Version None)
Quarter: 2005Q2

REPORT INFORMATION
  Report Type: 
  Country: None (occurrence: None)
  Receive Date: 20050603
  Receipt Date: 20050523
  Transmission Date: 20051028
  Serious: Yes (Other)
  Sender: FDA-Public Use
  Company Number: US-BRISTOL-MYERS SQUIBB COMPANY-12979431

PATIENT
  Age: 46 Year
  Sex: Female
  Weight: 63 kg

DRUGS (11)
  1. CARBOPLATIN [Suspect]
     Indication: OVARIAN CANCER
     Route: 042
     Dates: start: 20050511, end: 20050511
  2. TAXOL [Suspect]
     Indication: OVARIAN CANCER
     Route: 042
     Dates: start: 20050511, end: 20050511
  3. ZOLOFT [Concomitant]
  4. COMPAZINE [Concomitant]
  5. ATIVAN [Concomitant]
  6. ZOFRAN [Concomitant]
  7. PROCRIT [Concomitant]
  8. PEPCID [Concomitant]
     Indication: PREMEDICATION
     Route: 042
  9. BENADRYL [Concomitant]
     Indication: PREMEDICATION
     Route: 042
  10. DECADRON [Concomitant]
     Indication: PREMEDICATION
     Route: 042
  11. KYTRIL [Concomitant]
     Indication: PREMEDICATION
     Route: 042

REACTIONS (8)
  - BURNING SENSATION [None]
  - COMPARTMENT SYNDROME [None]
  - ERYTHEMA [None]
  - OEDEMA PERIPHERAL [None]
  - PAIN IN EXTREMITY [None]
  - SKIN DISCOLOURATION [None]
  - VASCULITIS [None]
  - VASOCONSTRICTION [None]
